FAERS Safety Report 13386446 (Version 1)
Quarter: 2017Q1

REPORT INFORMATION
  Report Type: Spontaneous
  Country: IN (occurrence: IN)
  Receive Date: 20170330
  Receipt Date: 20170330
  Transmission Date: 20170429
  Serious: Yes (Other)
  Sender: FDA-Public Use
  Company Number: IN-FRESENIUS KABI-FK201702614

PATIENT
  Age: 24 Year
  Sex: Male

DRUGS (1)
  1. SODIUM CHLORIDE (MANUFACTURER UNKNOWN) [Suspect]
     Active Substance: SODIUM CHLORIDE
     Indication: SURGERY
     Route: 065

REACTIONS (3)
  - Bradycardia [Recovered/Resolved]
  - Drug administration error [Recovered/Resolved]
  - Hypotension [Recovered/Resolved]
